FAERS Safety Report 12433143 (Version 5)
Quarter: 2016Q3

REPORT INFORMATION
  Report Type: Spontaneous
  Country: US (occurrence: US)
  Receive Date: 20160603
  Receipt Date: 20160919
  Transmission Date: 20161109
  Serious: Yes (Other)
  Sender: FDA-Public Use
  Company Number: PHEH2016US013463

PATIENT
  Sex: Female
  Weight: 68.93 kg

DRUGS (1)
  1. EXJADE [Suspect]
     Active Substance: DEFERASIROX
     Indication: SICKLE CELL ANAEMIA
     Dosage: 500 MG, UNK
     Route: 048

REACTIONS (4)
  - Drug ineffective [Unknown]
  - Sickle cell anaemia with crisis [Unknown]
  - Product taste abnormal [Unknown]
  - Product solubility abnormal [Unknown]
